FAERS Safety Report 14295788 (Version 1)
Quarter: 2017Q4

REPORT INFORMATION
  Report Type: Spontaneous
  Country: US (occurrence: US)
  Receive Date: 20171218
  Receipt Date: 20171218
  Transmission Date: 20180321
  Serious: No
  Sender: FDA-Public Use
  Company Number: US-009507513-1608USA008257

PATIENT

DRUGS (2)
  1. VARIVAX [Suspect]
     Active Substance: VARICELLA-ZOSTER VIRUS STRAIN OKA/MERCK LIVE ANTIGEN
     Indication: PROPHYLAXIS
     Route: 058
  2. STERILE DILUENT [Suspect]
     Active Substance: WATER
     Dosage: UNK

REACTIONS (2)
  - No adverse event [Unknown]
  - Medication error [Unknown]
